FAERS Safety Report 22207390 (Version 2)
Quarter: 2023Q2

REPORT INFORMATION
  Report Type: Spontaneous
  Country: FR (occurrence: None)
  Receive Date: 20230413
  Receipt Date: 20230519
  Transmission Date: 20230721
  Serious: Yes (Other)
  Sender: FDA-Public Use
  Company Number: 2023A080364

PATIENT
  Age: 61 Year
  Sex: Male
  Weight: 86 kg

DRUGS (5)
  1. DAPAGLIFLOZIN [Suspect]
     Active Substance: DAPAGLIFLOZIN
     Indication: Type 2 diabetes mellitus
     Route: 048
     Dates: start: 20220201, end: 2022
  2. METFORMIN JANUVIA [Concomitant]
     Dates: start: 202202
  3. GLICLAZIDE [Concomitant]
     Active Substance: GLICLAZIDE
     Dates: start: 202202
  4. CANDESARTAN [Concomitant]
     Active Substance: CANDESARTAN
     Indication: Hypertension
  5. ATORVASTATIN [Concomitant]
     Active Substance: ATORVASTATIN
     Indication: Dyslipidaemia

REACTIONS (7)
  - Haemangioma of liver [Unknown]
  - Fungal infection [Unknown]
  - Weight decreased [Recovering/Resolving]
  - Lipase increased [Recovering/Resolving]
  - Diabetes mellitus inadequate control [Unknown]
  - Cholelithiasis [Unknown]
  - Pruritus genital [Unknown]

NARRATIVE: CASE EVENT DATE: 20220401
